FAERS Safety Report 4857872-6 (Version None)
Quarter: 2005Q4

REPORT INFORMATION
  Report Type: 
  Country: None (occurrence: None)
  Receive Date: 20051219
  Receipt Date: 20050413
  Transmission Date: 20060501
  Serious: No
  Sender: FDA-Public Use
  Company Number: US-GLAXOSMITHKLINE-A0554135A

PATIENT
  Age: 47 Year
  Sex: Female
  Weight: 504 kg

DRUGS (3)
  1. NICODERM CQ [Suspect]
  2. NICODERM CQ [Suspect]
  3. NICODERM CQ [Suspect]

REACTIONS (7)
  - CARDIAC FLUTTER [None]
  - EPISTAXIS [None]
  - GINGIVAL BLEEDING [None]
  - MOUTH ULCERATION [None]
  - PAIN IN JAW [None]
  - SKIN ULCER [None]
  - SWELLING FACE [None]
